FAERS Safety Report 20405899 (Version 2)
Quarter: 2022Q2

REPORT INFORMATION
  Report Type: Report from Study
  Country: CA (occurrence: CA)
  Receive Date: 20220131
  Receipt Date: 20220421
  Transmission Date: 20220721
  Serious: Yes (Other)
  Sender: FDA-Public Use
  Company Number: CA-TAKEDA-2021TUS070840

PATIENT
  Age: 51 Year
  Sex: Female

DRUGS (1)
  1. VEDOLIZUMAB [Suspect]
     Active Substance: VEDOLIZUMAB
     Indication: Crohn^s disease
     Dosage: 300 MILLIGRAM
     Route: 042
     Dates: start: 20210919, end: 20220131

REACTIONS (7)
  - Crohn^s disease [Unknown]
  - Abdominal pain [Unknown]
  - Diarrhoea [Unknown]
  - Fistula [Not Recovered/Not Resolved]
  - Pustule [Unknown]
  - Arthralgia [Unknown]
  - Drug ineffective [Unknown]
